FAERS Safety Report 24910847 (Version 1)
Quarter: 2025Q1

REPORT INFORMATION
  Report Type: Other
  Country: KR (occurrence: KR)
  Receive Date: 20250131
  Receipt Date: 20250131
  Transmission Date: 20250409
  Serious: Yes (Other)
  Sender: AVEVA DRUG DELIVERY SYSTEMS INC.
  Company Number: KR-AVEVA-001616

PATIENT
  Age: 61 Year
  Sex: Male

DRUGS (3)
  1. FENTANYL [Suspect]
     Active Substance: FENTANYL
     Indication: Paroxysmal sympathetic hyperactivity
     Route: 062
  2. DANTROLENE [Suspect]
     Active Substance: DANTROLENE
     Indication: Paroxysmal sympathetic hyperactivity
     Route: 065
  3. GABAPENTIN [Suspect]
     Active Substance: GABAPENTIN
     Indication: Paroxysmal sympathetic hyperactivity
     Route: 065

REACTIONS (1)
  - Drug ineffective [Unknown]
